FAERS Safety Report 7088132-3 (Version None)
Quarter: 2010Q4

REPORT INFORMATION
  Report Type: 
  Country: None (occurrence: None)
  Receive Date: 20101028
  Receipt Date: 20101025
  Transmission Date: 20110411
  Serious: Yes (Life-Threatening)
  Sender: FDA-Public Use
  Company Number: TPA2010A05369

PATIENT
  Age: 79 Year
  Sex: Male
  Weight: 111.1313 kg

DRUGS (4)
  1. ACTOS [Suspect]
     Indication: TYPE 2 DIABETES MELLITUS
     Dosage: 30 MG, 1 IN 1 D, ORAL/5 YEARS AGO
     Route: 048
     Dates: end: 20101001
  2. METFORMIN HCL [Concomitant]
  3. AMARYL [Concomitant]
  4. IBUPROFEN [Concomitant]

REACTIONS (1)
  - BLADDER CANCER [None]
